FAERS Safety Report 17774861 (Version 1)
Quarter: 2020Q2

REPORT INFORMATION
  Report Type: Report from Study
  Country: US (occurrence: US)
  Receive Date: 20200513
  Receipt Date: 20200513
  Transmission Date: 20200714
  Serious: No
  Sender: FDA-Public Use
  Company Number: US-ACADIA PHARMACEUTICALS INC.-ACA-2020-PIM-000173

PATIENT
  Age: 94 Year
  Sex: Male
  Weight: 70 kg

DRUGS (7)
  1. CARBIDOPA LEVODOPA [Concomitant]
     Active Substance: CARBIDOPA\LEVODOPA
     Indication: MUSCULOSKELETAL STIFFNESS
     Dosage: 25/100MG /THREE TIMES A DAY
  2. CARBIDOPA LEVODOPA [Concomitant]
     Active Substance: CARBIDOPA\LEVODOPA
     Dosage: 25MG/100MG /ONCE A DAY/ EVENING
  3. AMLODIPINE [Concomitant]
     Active Substance: AMLODIPINE BESYLATE
     Indication: PRODUCT USED FOR UNKNOWN INDICATION
     Dosage: 2.5MG -5MG /AS NEEDED ON A SLIDING SCALE
  4. NUPLAZID [Suspect]
     Active Substance: PIMAVANSERIN TARTRATE
     Indication: DELUSION
  5. LAMOTRIGINE. [Concomitant]
     Active Substance: LAMOTRIGINE
     Indication: TRIGEMINAL NEURALGIA
  6. NUPLAZID [Suspect]
     Active Substance: PIMAVANSERIN TARTRATE
     Indication: HALLUCINATION
  7. NUPLAZID [Suspect]
     Active Substance: PIMAVANSERIN TARTRATE
     Indication: PARKINSON^S DISEASE PSYCHOSIS
     Dosage: 34 MILLIGRAM, QD
     Route: 048
     Dates: start: 20200101

REACTIONS (5)
  - Anger [Recovered/Resolved]
  - Fall [Unknown]
  - Psychotic disorder [Recovered/Resolved]
  - Hallucination [Not Recovered/Not Resolved]
  - Aggression [Recovered/Resolved]

NARRATIVE: CASE EVENT DATE: 202001
